FAERS Safety Report 4818290-X (Version None)
Quarter: 2005Q4

REPORT INFORMATION
  Report Type: 
  Country: None (occurrence: None)
  Receive Date: 20051031
  Receipt Date: 20051031
  Transmission Date: 20060501
  Serious: Yes (Hospitalization)
  Sender: FDA-Public Use
  Company Number: None

PATIENT
  Age: 51 Year
  Sex: Male
  Weight: 86.1834 kg

DRUGS (2)
  1. FUROSEMIDE [Suspect]
     Dosage: 1 TABLET PO Q AM
     Route: 048
     Dates: start: 20050715, end: 20050901
  2. SPIRONOLACTONE [Suspect]
     Indication: HYPERTENSION
     Dosage: 2 TABLETS PO BID
     Route: 048
     Dates: start: 20050815, end: 20050901

REACTIONS (3)
  - DIZZINESS [None]
  - FALL [None]
  - HYPONATRAEMIA [None]
